FAERS Safety Report 5286190-X (Version None)
Quarter: 2007Q2

REPORT INFORMATION
  Report Type: 
  Country: None (occurrence: None)
  Receive Date: 20070403
  Receipt Date: 20070403
  Transmission Date: 20071010
  Serious: Yes (Hospitalization)
  Sender: FDA-Public Use
  Company Number: None

PATIENT
  Sex: Male
  Weight: 84.3 kg

DRUGS (1)
  1. INTEGRILIN [Suspect]
     Indication: ANGIOPLASTY
     Dosage: 2MCG/KG/MIN IV
     Route: 042

REACTIONS (6)
  - EYE DISORDER [None]
  - HAEMATEMESIS [None]
  - HAEMATOMA [None]
  - HAEMORRHAGE [None]
  - LIP HAEMATOMA [None]
  - PLATELET COUNT DECREASED [None]
